FAERS Safety Report 7653351-1 (Version None)
Quarter: 2011Q3

REPORT INFORMATION
  Report Type: 
  Country: None (occurrence: None)
  Receive Date: 20110803
  Receipt Date: 20110729
  Transmission Date: 20111222
  Serious: Yes (Other)
  Sender: FDA-Public Use
  Company Number: FR-PFIZER INC-2011174111

PATIENT
  Age: 52 Year
  Sex: Male

DRUGS (2)
  1. ZOLOFT [Suspect]
     Indication: DEPRESSION
  2. ZOLOFT [Suspect]
     Indication: ANXIETY
     Dosage: 50 MG, 1X/DAY
     Dates: start: 20110601

REACTIONS (4)
  - PRESYNCOPE [None]
  - LOSS OF CONSCIOUSNESS [None]
  - MALAISE [None]
  - BLOOD CREATINE PHOSPHOKINASE INCREASED [None]
